FAERS Safety Report 4726699-8 (Version None)
Quarter: 2005Q3

REPORT INFORMATION
  Report Type: 
  Country: None (occurrence: None)
  Receive Date: 20050725
  Receipt Date: 20050513
  Transmission Date: 20060218
  Serious: No
  Sender: FDA-Public Use
  Company Number: USA040464303

PATIENT
  Age: 50 Year
  Sex: Female
  Weight: 70 kg

DRUGS (20)
  1. STRATTERA [Suspect]
     Indication: DISTURBANCE IN ATTENTION
     Dosage: 120 MG DAY
     Dates: start: 20031201
  2. CYMBALTA [Suspect]
     Indication: PAIN IN EXTREMITY
     Dosage: 60 MG
     Dates: start: 20050401
  3. PROZAC [Suspect]
     Indication: DEPRESSION
  4. OLANZAPINE [Suspect]
     Dosage: 2 DSG FORM/2 DAY
     Dates: start: 20040101
  5. GABAPENTIN [Concomitant]
  6. LIPITOR [Concomitant]
  7. CYTOTEC [Concomitant]
  8. ULTRAM [Concomitant]
  9. AMBIEN [Concomitant]
  10. NASONEX [Concomitant]
  11. ACETYLSALICYLIC ACID SRT [Concomitant]
  12. SUBUTEX [Concomitant]
  13. PROGESTERONE [Concomitant]
  14. ESTROGEN PATCH [Concomitant]
  15. TYLENOL W/ CODEINE NO. 4 [Concomitant]
  16. SERAX [Concomitant]
  17. XANAX [Concomitant]
  18. KLONOPIN [Concomitant]
  19. FIORICET [Concomitant]
  20. POLARAMINE [Concomitant]

REACTIONS (5)
  - DRUG INEFFECTIVE [None]
  - HEART RATE INCREASED [None]
  - INSOMNIA [None]
  - PRESCRIBED OVERDOSE [None]
  - SOMNOLENCE [None]
